FAERS Safety Report 8402001 (Version 6)
Quarter: 2013Q1

REPORT INFORMATION
  Report Type: Spontaneous
  Country: US (occurrence: None)
  Receive Date: 20120201
  Receipt Date: 20121031
  Transmission Date: 20140127
  Serious: Yes (Hospitalization, Other)
  Sender: FDA-Public Use
  Company Number: ADR-2012-00207

PATIENT
  Age: 20 Year
  Sex: Female

DRUGS (2)
  1. BACLOFEN [Suspect]
     Indication: MUSCLE SPASTICITY
  2. BACLOFEN [Suspect]
     Indication: CEREBRAL PALSY

REACTIONS (14)
  - Drug effect decreased [None]
  - Fatigue [None]
  - Device extrusion [None]
  - Post lumbar puncture syndrome [None]
  - Muscle spasms [None]
  - Pyrexia [None]
  - Diarrhoea [None]
  - Incision site oedema [None]
  - Device kink [None]
  - Device dislocation [None]
  - Device occlusion [None]
  - Wound [None]
  - Bloody discharge [None]
  - Drug withdrawal syndrome [None]
